FAERS Safety Report 5737311-3 (Version None)
Quarter: 2008Q2

REPORT INFORMATION
  Report Type: 
  Country: None (occurrence: None)
  Receive Date: 20080512
  Receipt Date: 20080512
  Transmission Date: 20081010
  Serious: Yes (Death)
  Sender: FDA-Public Use
  Company Number: None

PATIENT
  Age: 56 Year
  Sex: Male
  Weight: 104.3273 kg

DRUGS (1)
  1. DIGITEK  .125MG  STERICYCLE [Suspect]
     Indication: HEART RATE IRREGULAR
     Dosage: 2 PILLS DAILY PO
     Route: 048
     Dates: start: 20071001, end: 20080206

REACTIONS (2)
  - MYOCARDIAL INFARCTION [None]
  - PHARMACEUTICAL PRODUCT COMPLAINT [None]
